FAERS Safety Report 16065940 (Version 1)
Quarter: 2019Q2

REPORT INFORMATION
  Report Type: Spontaneous
  Country: US (occurrence: US)
  Receive Date: 20190312
  Receipt Date: 20190312
  Transmission Date: 20190711
  Serious: No
  Sender: FDA-Public Use
  Company Number: None

PATIENT
  Age: 58 Year
  Sex: Male

DRUGS (1)
  1. GLATIRAMER [Suspect]
     Active Substance: GLATIRAMER
     Indication: MULTIPLE SCLEROSIS
     Dosage: ?          OTHER FREQUENCY:EVERY 3 WEEKS;?
     Route: 058
     Dates: start: 20190116

REACTIONS (6)
  - Disease recurrence [None]
  - Gait disturbance [None]
  - Injection site reaction [None]
  - Injection site erythema [None]
  - Mobility decreased [None]
  - Fatigue [None]

NARRATIVE: CASE EVENT DATE: 20190107
